FAERS Safety Report 10585148 (Version 4)
Quarter: 2015Q1

REPORT INFORMATION
  Report Type: Report from Study
  Country: US (occurrence: US)
  Receive Date: 20141114
  Receipt Date: 20150102
  Transmission Date: 20150720
  Serious: Yes (Other)
  Sender: FDA-Public Use
  Company Number: US-SA-2014SA152386

PATIENT
  Age: 39 Year
  Sex: Female

DRUGS (1)
  1. AUBAGIO [Suspect]
     Active Substance: TERIFLUNOMIDE
     Indication: MULTIPLE SCLEROSIS
     Route: 048
     Dates: start: 20141026, end: 20141126

REACTIONS (4)
  - Balance disorder [Unknown]
  - Fall [Unknown]
  - Pruritus [Unknown]
  - Dizziness [Unknown]

NARRATIVE: CASE EVENT DATE: 201410
